FAERS Safety Report 24349908 (Version 1)
Quarter: 2024Q3

REPORT INFORMATION
  Report Type: Spontaneous
  Country: US (occurrence: US)
  Receive Date: 20240923
  Receipt Date: 20240923
  Transmission Date: 20241016
  Serious: No
  Sender: ROCHE
  Company Number: US-ROCHE-3484410

PATIENT
  Sex: Female

DRUGS (2)
  1. HERCEPTIN [Suspect]
     Active Substance: TRASTUZUMAB
     Indication: Colon cancer
     Dosage: INFUSION
     Route: 065
  2. TUKYSA [Suspect]
     Active Substance: TUCATINIB
     Indication: Colon cancer
     Route: 065

REACTIONS (5)
  - Headache [Unknown]
  - Uterine leiomyoma [Unknown]
  - Chills [Unknown]
  - Pyrexia [Unknown]
  - Contusion [Unknown]
